FAERS Safety Report 9846821 (Version 1)
Quarter: 2014Q1

REPORT INFORMATION
  Report Type: Spontaneous
  Country: FI (occurrence: FI)
  Receive Date: 20140127
  Receipt Date: 20140127
  Transmission Date: 20141002
  Serious: Yes (Hospitalization)
  Sender: FDA-Public Use
  Company Number: FI-NAPPMUNDI-GBR-2013-0016186

PATIENT
  Age: 70 Year
  Sex: Female

DRUGS (21)
  1. NORSPAN 5 MCG/HR DEPOTLAASTARI [Suspect]
     Indication: BACK PAIN
     Dosage: 5 MCG, 7-8 HOURS
     Route: 062
     Dates: start: 20130924
  2. TARGINIQ DEPOTTABLETTI [Suspect]
     Indication: BACK PAIN
     Dosage: UNK MG, UNK
     Route: 048
     Dates: start: 20130925
  3. OXYNORM KAPSELI, KOVA [Concomitant]
     Indication: PAIN
     Dosage: UNK, PRN
  4. SIRDALUD [Concomitant]
     Indication: PAIN
     Dosage: 2 MG, BID
     Dates: end: 20130924
  5. TRAMAL [Concomitant]
     Indication: PAIN
     Dosage: 100 MG, BID
     Dates: end: 20130924
  6. PANADOL                            /00020001/ [Concomitant]
     Indication: PAIN
     Dosage: 1 G, TID PRN
     Dates: start: 20130924
  7. NORFLEX                            /00018303/ [Concomitant]
     Indication: PAIN
     Dosage: UNK, PRN
     Route: 048
     Dates: end: 20130924
  8. SPIRONOLACTONE [Concomitant]
     Dosage: 25 MG X 0.5
  9. BISOPROLOL [Concomitant]
     Dosage: 5 MG X 0.5
  10. PULMICORT [Concomitant]
     Dosage: 200 2HV X2
  11. ASACOL [Concomitant]
     Dosage: 800 MG, BID
  12. ESOMEPRAZOL                        /01479301/ [Concomitant]
     Dosage: 20 MG, DAILY
  13. PAUSANOL [Concomitant]
     Dosage: FOR 47 WEEKS
  14. VAGIFEM [Concomitant]
     Dosage: FOR 27 WEEKS
  15. PREDNISOLON                        /00016201/ [Concomitant]
     Dosage: 5 MG, DAILY
  16. THYROXIN [Concomitant]
     Dosage: 100 MG, DAILY
  17. MAREVAN [Concomitant]
     Dosage: 5 MG, UNK
  18. CALCICHEW D3 [Concomitant]
     Dosage: 2 DF, UNK
  19. BRICANYL [Concomitant]
     Dosage: UNK, PRN
  20. NASONEX [Concomitant]
     Dosage: UNK, PRN
  21. MIACALCIC NASAL [Concomitant]
     Dosage: UNK
     Route: 045
     Dates: start: 20130917

REACTIONS (6)
  - Arrhythmia [Recovered/Resolved]
  - Blood pressure increased [Recovered/Resolved]
  - Nightmare [Unknown]
  - Hallucination, visual [Recovered/Resolved]
  - Dry mouth [Recovered/Resolved]
  - Dyspnoea [Recovered/Resolved]
